FAERS Safety Report 9713470 (Version 1)
Quarter: 2013Q4

REPORT INFORMATION
  Report Type: Other
  Country: US (occurrence: US)
  Receive Date: 20131126
  Receipt Date: 20131126
  Transmission Date: 20140711
  Serious: Yes (Other)
  Sender: FDA-Public Use
  Company Number: US-SHIRE-ALL1-2013-08108

PATIENT
  Age: 42 Year
  Sex: Female

DRUGS (1)
  1. VPRIV [Suspect]
     Indication: PRODUCT USED FOR UNKNOWN INDICATION
     Dosage: UNK, UNKNOWN
     Route: 041

REACTIONS (5)
  - Convulsion [Unknown]
  - Syncope [Unknown]
  - Infusion related reaction [Unknown]
  - Anxiety [Unknown]
  - Weight increased [Unknown]
